FAERS Safety Report 25858597 (Version 1)
Quarter: 2025Q3

REPORT INFORMATION
  Report Type: Spontaneous
  Country: US (occurrence: US)
  Receive Date: 20250929
  Receipt Date: 20250929
  Transmission Date: 20251020
  Serious: No
  Sender: STRIDES
  Company Number: US-STRIDES ARCOLAB LIMITED-2025SP002295

PATIENT
  Age: 35 Year
  Sex: Male

DRUGS (5)
  1. PREDNISOLONE [Suspect]
     Active Substance: PREDNISOLONE
     Indication: Erdheim-Chester disease
     Route: 048
  2. METHOTREXATE SODIUM [Suspect]
     Active Substance: METHOTREXATE SODIUM
     Indication: Erdheim-Chester disease
     Route: 048
  3. DEXAMETHASONE [Suspect]
     Active Substance: DEXAMETHASONE
     Indication: Erdheim-Chester disease
     Route: 065
  4. MERCAPTOPURINE [Suspect]
     Active Substance: MERCAPTOPURINE
     Indication: Erdheim-Chester disease
     Route: 065
  5. CLADRIBINE [Concomitant]
     Active Substance: CLADRIBINE
     Indication: Erdheim-Chester disease
     Route: 065

REACTIONS (4)
  - Hyperglycaemia [Unknown]
  - Asthenia [Unknown]
  - Malaise [Unknown]
  - Off label use [Unknown]
